FAERS Safety Report 14251422 (Version 2)
Quarter: 2017Q4

REPORT INFORMATION
  Report Type: Report from Study
  Country: CR (occurrence: CR)
  Receive Date: 20171205
  Receipt Date: 20171231
  Transmission Date: 20180321
  Serious: Yes (Hospitalization, Other)
  Sender: FDA-Public Use
  Company Number: PHHY2017CR178315

PATIENT
  Age: 89 Year
  Sex: Female

DRUGS (1)
  1. SANDOSTATIN LAR DEPOT [Suspect]
     Active Substance: OCTREOTIDE ACETATE
     Indication: PRODUCT USED FOR UNKNOWN INDICATION
     Route: 065

REACTIONS (7)
  - Asphyxia [Unknown]
  - Pulmonary oedema [Unknown]
  - Cardiomegaly [Unknown]
  - Agitation [Unknown]
  - Cardiac disorder [Unknown]
  - Lung disorder [Unknown]
  - Oxygen consumption decreased [Unknown]
